FAERS Safety Report 5209766-4 (Version None)
Quarter: 2006Q4

REPORT INFORMATION
  Report Type: 
  Country: None (occurrence: None)
  Receive Date: 20061107
  Receipt Date: 20060612
  Transmission Date: 20070319
  Serious: No
  Sender: FDA-Public Use
  Company Number: IPX00001

PATIENT
  Sex: Male

DRUGS (1)
  1. IPLEX [Suspect]

REACTIONS (1)
  - INJECTION SITE IRRITATION [None]
